FAERS Safety Report 19403234 (Version 3)
Quarter: 2021Q3

REPORT INFORMATION
  Report Type: Spontaneous
  Country: IN (occurrence: IN)
  Receive Date: 20210610
  Receipt Date: 20210922
  Transmission Date: 20211014
  Serious: Yes (Other)
  Sender: FDA-Public Use
  Company Number: IN-PFIZER INC-2020066019

PATIENT
  Age: 76 Year
  Sex: Female

DRUGS (1)
  1. PALBACE [Suspect]
     Active Substance: PALBOCICLIB
     Indication: BREAST CANCER METASTATIC
     Dosage: 125 MG, ONCE DAILY, 21 DAYS ON, THEN 7 DAYS OFF, EVERY 28 DAYS
     Route: 048
     Dates: start: 20190704

REACTIONS (2)
  - Off label use [Unknown]
  - Paralysis [Unknown]
